FAERS Safety Report 9472117 (Version 1)
Quarter: 2013Q3

REPORT INFORMATION
  Report Type: Spontaneous
  Country: US (occurrence: US)
  Receive Date: 20130823
  Receipt Date: 20130823
  Transmission Date: 20140515
  Serious: Yes (Death)
  Sender: FDA-Public Use
  Company Number: US-ROCHE-1265561

PATIENT
  Sex: Female

DRUGS (5)
  1. XELODA [Suspect]
     Indication: NEOPLASM MALIGNANT
     Dosage: 3 X 500 MG TABLETS
     Route: 048
     Dates: start: 20130716
  2. XELODA [Suspect]
     Dosage: 2 X 150 MG TABLETS
     Route: 048
     Dates: start: 20130716
  3. NEXIUM [Concomitant]
  4. VITAMIN C [Concomitant]
  5. VITAMIN E [Concomitant]

REACTIONS (1)
  - Death [Fatal]
